FAERS Safety Report 17157608 (Version 1)
Quarter: 2019Q4

REPORT INFORMATION
  Report Type: Spontaneous
  Country: FR (occurrence: FR)
  Receive Date: 20191216
  Receipt Date: 20191216
  Transmission Date: 20200122
  Serious: Yes (Other)
  Sender: FDA-Public Use
  Company Number: NVSC2019FR064856

PATIENT
  Sex: Male
  Weight: 1.91 kg

DRUGS (2)
  1. DEPAKINE [Suspect]
     Active Substance: VALPROATE SODIUM
     Indication: FOETAL EXPOSURE DURING PREGNANCY
     Dosage: MATERNAL DOSE: 2 G, QD
     Route: 064
  2. TEGRETOL [Suspect]
     Active Substance: CARBAMAZEPINE
     Indication: FOETAL EXPOSURE DURING PREGNANCY
     Dosage: MATERNAL DOSE: 400 MG, QD
     Route: 064

REACTIONS (6)
  - Placental infarction [Not Recovered/Not Resolved]
  - Cardiac murmur [Recovered/Resolved]
  - Dyslexia [Unknown]
  - Congenital genitourinary abnormality [Unknown]
  - Tonsillitis [Unknown]
  - Foetal growth restriction [Recovered/Resolved]

NARRATIVE: CASE EVENT DATE: 1988
